FAERS Safety Report 7498954-2 (Version None)
Quarter: 2011Q2

REPORT INFORMATION
  Report Type: 
  Country: None (occurrence: None)
  Receive Date: 20110524
  Receipt Date: 20110513
  Transmission Date: 20111010
  Serious: Yes (Other)
  Sender: FDA-Public Use
  Company Number: FI-ELI_LILLY_AND_COMPANY-FI201105000821

PATIENT
  Sex: Female

DRUGS (4)
  1. BLOCANOL [Concomitant]
     Indication: GLAUCOMA
     Dosage: UNK, UNKNOWN
     Route: 065
  2. FORTEO [Suspect]
     Indication: OSTEOPOROSIS
     Dosage: 20 UG, QD
     Route: 058
     Dates: start: 20110411, end: 20110412
  3. COSOPT [Concomitant]
     Indication: GLAUCOMA
     Dosage: UNK, UNKNOWN
     Route: 065
  4. VISCOTEARS [Concomitant]
     Indication: DRY EYE
     Dosage: UNK, UNKNOWN
     Route: 065

REACTIONS (2)
  - ULCERATIVE KERATITIS [None]
  - DRY MOUTH [None]
